FAERS Safety Report 9462666 (Version 1)
Quarter: 2013Q3

REPORT INFORMATION
  Report Type: Spontaneous
  Country: FR (occurrence: FR)
  Receive Date: 20130816
  Receipt Date: 20130816
  Transmission Date: 20140515
  Serious: Yes (Hospitalization, Other)
  Sender: FDA-Public Use
  Company Number: FR-ABBOTT-13X-056-1132510-00

PATIENT
  Age: 73 Year
  Sex: Male

DRUGS (5)
  1. TARKA LP [Suspect]
     Indication: HYPERTENSION
     Route: 048
     Dates: end: 20130624
  2. KARDEGIC [Suspect]
     Indication: PRODUCT USED FOR UNKNOWN INDICATION
     Route: 048
  3. METFORMINE [Concomitant]
     Indication: TYPE 2 DIABETES MELLITUS
     Route: 048
  4. METFORMINE [Concomitant]
     Dates: start: 20130715
  5. ESIDREX [Concomitant]
     Indication: PRODUCT USED FOR UNKNOWN INDICATION
     Route: 048

REACTIONS (16)
  - Metastases to liver [Unknown]
  - Renal failure acute [Recovered/Resolved]
  - Hyperkalaemia [Recovered/Resolved]
  - Disease progression [Recovered/Resolved]
  - Bladder obstruction [Unknown]
  - Diarrhoea [Unknown]
  - Faeces discoloured [Unknown]
  - Melaena [Unknown]
  - Escherichia infection [Unknown]
  - Hepatic lesion [Unknown]
  - Splenic lesion [Unknown]
  - Gastric ulcer [Unknown]
  - Dehydration [Unknown]
  - Anaemia [Unknown]
  - Lung neoplasm [Unknown]
  - Endocrine neoplasm malignant [Unknown]
